FAERS Safety Report 7282996-6 (Version None)
Quarter: 2010Q4

REPORT INFORMATION
  Report Type: 
  Country: None (occurrence: None)
  Receive Date: 20101221
  Receipt Date: 20100721
  Transmission Date: 20110411
  Serious: Yes (Other)
  Sender: FDA-Public Use
  Company Number: WAES 1007USA02540

PATIENT
  Age: 58 Year
  Sex: Female

DRUGS (8)
  1. JANUVIA [Suspect]
     Indication: DIABETES MELLITUS
     Dosage: 100 MG/DAILY/PO
     Route: 048
     Dates: start: 20100401
  2. DETROL LA [Concomitant]
  3. EFFEXOR XR [Concomitant]
  4. LANTUS [Concomitant]
  5. FUROSEMIDE [Concomitant]
  6. INSULIN [Concomitant]
  7. METOPROLOL [Concomitant]
  8. SIMVASTATIN [Concomitant]

REACTIONS (1)
  - PANCREATITIS [None]
